FAERS Safety Report 15135798 (Version 1)
Quarter: 2018Q3

REPORT INFORMATION
  Report Type: Spontaneous
  Country: US (occurrence: US)
  Receive Date: 20180616
  Receipt Date: 20180616
  Transmission Date: 20181010
  Serious: Yes (Hospitalization)
  Sender: FDA-Public Use
  Company Number: None

PATIENT
  Age: 18 Year
  Sex: Male
  Weight: 68.2 kg

DRUGS (4)
  1. HYDROCORTISONE. [Suspect]
     Active Substance: HYDROCORTISONE
     Dates: end: 20130528
  2. CYTARABINE. [Suspect]
     Active Substance: CYTARABINE
     Dates: end: 20130601
  3. ETOPOSIDE (VP?16) [Suspect]
     Active Substance: ETOPOSIDE
     Dates: end: 20130601
  4. METHROTREXATE [Suspect]
     Active Substance: METHOTREXATE
     Dates: end: 20130528

REACTIONS (4)
  - Chest X-ray abnormal [None]
  - Cough [None]
  - Nodule [None]
  - Upper respiratory fungal infection [None]

NARRATIVE: CASE EVENT DATE: 20130627
